FAERS Safety Report 25950840 (Version 2)
Quarter: 2025Q4

REPORT INFORMATION
  Report Type: Spontaneous
  Country: GB (occurrence: GB)
  Receive Date: 20251023
  Receipt Date: 20251114
  Transmission Date: 20260118
  Serious: Yes (Other)
  Sender: SANOFI AVENTIS
  Company Number: None

PATIENT
  Age: 3 Month
  Sex: Male

DRUGS (8)
  1. NIRSEVIMAB [Suspect]
     Active Substance: NIRSEVIMAB
     Indication: Prophylaxis
     Dosage: 50 MG
     Dates: start: 20251010, end: 20251010
  2. Octenisan [Concomitant]
     Indication: Prophylaxis
     Dosage: UNK
     Dates: start: 20250702
  3. Sytron [Concomitant]
     Dosage: UNK
     Dates: start: 20250728
  4. OMEPRAZOLE [Concomitant]
     Active Substance: OMEPRAZOLE
     Dosage: UNK
     Dates: start: 20250912
  5. LACTULOSE [Concomitant]
     Active Substance: LACTULOSE
     Dosage: UNK
     Dates: start: 20250930
  6. ROTARIX [Concomitant]
     Active Substance: HUMAN ROTAVIRUS A TYPE G1P(8) STRAIN RIX4414 LIVE ANTIGEN
     Indication: Immunisation
     Dosage: UNK
     Route: 065
     Dates: start: 20251006, end: 20251006
  7. INFANRIX HEXA [Concomitant]
     Active Substance: DIPHTHERIA AND TETANUS TOXOIDS AND ACELLULAR PERTUSSIS ADSORBED, INACTIVATED POLIOVIRUS AND HAEMOPHI
     Indication: Immunisation
     Dosage: UNK
     Route: 065
     Dates: start: 20251006, end: 20251006
  8. BEXSERO [Concomitant]
     Active Substance: MENINGOCOCCAL GROUP B VACCINE
     Indication: Immunisation
     Dosage: UNK
     Route: 065
     Dates: start: 20251006, end: 20251006

REACTIONS (7)
  - Respiratory distress [Recovering/Resolving]
  - Apnoea [Recovered/Resolved]
  - Respiratory acidosis [Recovered/Resolved]
  - C-reactive protein increased [Recovered/Resolved]
  - Neonatal hypoxia [Unknown]
  - Bradycardia [Unknown]
  - Pyrexia [Recovered/Resolved]

NARRATIVE: CASE EVENT DATE: 20251013
